FAERS Safety Report 4468009-X (Version None)
Quarter: 2004Q4

REPORT INFORMATION
  Report Type: 
  Country: None (occurrence: None)
  Receive Date: 20041004
  Receipt Date: 20040923
  Transmission Date: 20050328
  Serious: Yes (Hospitalization)
  Sender: FDA-Public Use
  Company Number: 2004235598FR

PATIENT
  Age: 86 Year
  Sex: Male

DRUGS (6)
  1. ALDACTONE [Suspect]
     Indication: CARDIAC FAILURE CONGESTIVE
     Dosage: 25 MG, QD, ORAL
     Route: 048
     Dates: start: 20040709, end: 20040801
  2. ALLOPURINOL [Suspect]
     Indication: CARDIAC FAILURE CONGESTIVE
     Dosage: 200 MG, QD, ORAL
     Route: 048
     Dates: start: 20040709, end: 20040801
  3. BURINEX (BUMETANIDE) TABLET [Concomitant]
     Indication: CARDIAC FAILURE CONGESTIVE
     Dosage: 5 MG, QD, ORAL
     Route: 048
     Dates: start: 20040709, end: 20040801
  4. RAMIPRIL [Concomitant]
  5. HYDROCHLOROTHIAZIDE [Concomitant]
  6. KREDEX [Concomitant]

REACTIONS (6)
  - BLOOD CREATININE INCREASED [None]
  - CARDIAC DISORDER [None]
  - EOSINOPHILIA [None]
  - PRURITUS GENERALISED [None]
  - RASH MACULO-PAPULAR [None]
  - SKIN DESQUAMATION [None]
